FAERS Safety Report 7693732-3 (Version None)
Quarter: 2011Q3

REPORT INFORMATION
  Report Type: 
  Country: None (occurrence: None)
  Receive Date: 20110819
  Receipt Date: 20110812
  Transmission Date: 20111222
  Serious: Yes (Hospitalization)
  Sender: FDA-Public Use
  Company Number: US-ROCHE-797126

PATIENT
  Sex: Female

DRUGS (3)
  1. PEGINTERFERON ALFA-2A [Suspect]
     Route: 065
  2. RIBAVIRIN [Suspect]
     Route: 065
  3. VICTRELIS [Suspect]
     Route: 065

REACTIONS (4)
  - MUSCULOSKELETAL CHEST PAIN [None]
  - CHRONIC OBSTRUCTIVE PULMONARY DISEASE [None]
  - BACK PAIN [None]
  - OEDEMA PERIPHERAL [None]
